FAERS Safety Report 18299433 (Version 4)
Quarter: 2020Q4

REPORT INFORMATION
  Report Type: Spontaneous
  Country: US (occurrence: US)
  Receive Date: 20200922
  Receipt Date: 20201111
  Transmission Date: 20210113
  Serious: No
  Sender: FDA-Public Use
  Company Number: US-INCYTE CORPORATION-2020IN008437

PATIENT

DRUGS (3)
  1. JAKAFI [Suspect]
     Active Substance: RUXOLITINIB
     Dosage: 20 MILLIGRAM, BID
     Route: 048
     Dates: start: 20200717
  2. JAKAFI [Suspect]
     Active Substance: RUXOLITINIB
     Dosage: 20 MILLIGRAM, BID
     Route: 048
     Dates: start: 20200720
  3. JAKAFI [Suspect]
     Active Substance: RUXOLITINIB
     Dosage: 20 MILLIGRAM, BID
     Route: 048
     Dates: start: 20200720

REACTIONS (9)
  - Headache [Recovered/Resolved]
  - Product dose omission issue [Unknown]
  - Platelet count abnormal [Unknown]
  - Intentional product use issue [Unknown]
  - Fatigue [Recovered/Resolved]
  - Weight increased [Unknown]
  - Illness [Unknown]
  - Dizziness [Recovered/Resolved]
  - Product dose omission in error [Unknown]
